FAERS Safety Report 15762711 (Version 2)
Quarter: 2018Q4

REPORT INFORMATION
  Report Type: Spontaneous
  Country: AU (occurrence: AU)
  Receive Date: 20181226
  Receipt Date: 20181227
  Transmission Date: 20190205
  Serious: Yes (Other)
  Sender: FDA-Public Use
  Company Number: AU-BIOGEN-2014BI027003

PATIENT
  Sex: Female

DRUGS (4)
  1. TECFIDERA [Suspect]
     Active Substance: DIMETHYL FUMARATE
     Dosage: MAINTENANCE DOSE
     Route: 065
  2. TECFIDERA [Suspect]
     Active Substance: DIMETHYL FUMARATE
     Route: 065
     Dates: start: 20181215
  3. TECFIDERA [Suspect]
     Active Substance: DIMETHYL FUMARATE
     Indication: MULTIPLE SCLEROSIS
     Dosage: STARTING DOSE
     Route: 048
     Dates: start: 20140313
  4. TECFIDERA [Suspect]
     Active Substance: DIMETHYL FUMARATE
     Route: 065

REACTIONS (16)
  - Paraesthesia [Unknown]
  - Abdominal discomfort [Not Recovered/Not Resolved]
  - Pruritus [Recovered/Resolved]
  - Gastrooesophageal reflux disease [Not Recovered/Not Resolved]
  - Lymphocyte count decreased [Unknown]
  - Muscle spasms [Unknown]
  - Prescribed underdose [Not Recovered/Not Resolved]
  - Dyspepsia [Unknown]
  - Vomiting [Unknown]
  - Heat stroke [Recovered/Resolved]
  - Middle insomnia [Unknown]
  - Malaise [Not Recovered/Not Resolved]
  - Feeling hot [Unknown]
  - Flushing [Not Recovered/Not Resolved]
  - Lower respiratory tract infection [Recovered/Resolved]
  - Nausea [Not Recovered/Not Resolved]

NARRATIVE: CASE EVENT DATE: 2017
